FAERS Safety Report 12386282 (Version 2)
Quarter: 2016Q2

REPORT INFORMATION
  Report Type: Report from Study
  Country: US (occurrence: US)
  Receive Date: 20160519
  Receipt Date: 20160612
  Transmission Date: 20160815
  Serious: Yes (Hospitalization, Other)
  Sender: FDA-Public Use
  Company Number: US-AMGEN-USASL2016063123

PATIENT
  Age: 56 Year
  Sex: Female

DRUGS (1)
  1. ENBREL [Suspect]
     Active Substance: ETANERCEPT
     Indication: RHEUMATOID ARTHRITIS
     Dosage: UNK UNK, UNK
     Route: 065

REACTIONS (5)
  - Pain [Not Recovered/Not Resolved]
  - Diabetes mellitus [Unknown]
  - Furuncle [Not Recovered/Not Resolved]
  - Wound infection staphylococcal [Not Recovered/Not Resolved]
  - Arthralgia [Unknown]
